FAERS Safety Report 9619630 (Version 2)
Quarter: 2013Q4

REPORT INFORMATION
  Report Type: Spontaneous
  Country: ES (occurrence: DE)
  Receive Date: 20131014
  Receipt Date: 20131227
  Transmission Date: 20140711
  Serious: Yes (Disabling)
  Sender: FDA-Public Use
  Company Number: DE-FRI-1000049980

PATIENT
  Age: 59 Year
  Sex: Male
  Weight: 114 kg

DRUGS (6)
  1. ACLIDINIUM [Suspect]
     Indication: CHRONIC OBSTRUCTIVE PULMONARY DISEASE
     Route: 055
     Dates: start: 20130328, end: 201304
  2. L-THYROXIN [Concomitant]
     Dosage: 1 DF
  3. SIMVA [Concomitant]
     Dosage: 1 DF
  4. TAMSULOSIN [Concomitant]
     Dosage: 1 DF
  5. AERIUS [Concomitant]
     Dosage: 1 DF
  6. VIANI 50/500 [Concomitant]
     Dosage: 2 DF

REACTIONS (3)
  - Cataract [Not Recovered/Not Resolved]
  - Corneal abrasion [Not Recovered/Not Resolved]
  - Vision blurred [Not Recovered/Not Resolved]
